FAERS Safety Report 4401228-7 (Version None)
Quarter: 2004Q3

REPORT INFORMATION
  Report Type: 
  Country: None (occurrence: None)
  Receive Date: 20040907
  Receipt Date: 20040108
  Transmission Date: 20050211
  Serious: No
  Sender: FDA-Public Use
  Company Number: US-BRISTOL-MYERS SQUIBB COMPANY-12473419

PATIENT
  Age: 68 Year
  Sex: Female
  Weight: 88 kg

DRUGS (7)
  1. COUMADIN [Suspect]
     Indication: CORONARY ARTERY SURGERY
     Dosage: DOSE VARIED BASED ON LAB RESULTS
     Route: 048
     Dates: start: 19960101
  2. COUMADIN [Suspect]
     Indication: AORTIC VALVE REPLACEMENT
     Dosage: DOSE VARIED BASED ON LAB RESULTS
     Route: 048
     Dates: start: 19960101
  3. ZOCOR [Concomitant]
  4. PLENDIL [Concomitant]
  5. LOZOL [Concomitant]
  6. METOPROLOL [Concomitant]
  7. ASPIRIN [Concomitant]

REACTIONS (2)
  - INTERNATIONAL NORMALISED RATIO DECREASED [None]
  - PROTHROMBIN TIME SHORTENED [None]
